FAERS Safety Report 9769955 (Version 1)
Quarter: 2013Q4

REPORT INFORMATION
  Report Type: Spontaneous
  Country: US (occurrence: US)
  Receive Date: 20131218
  Receipt Date: 20131218
  Transmission Date: 20140711
  Serious: No
  Sender: FDA-Public Use
  Company Number: US-VERTEX PHARMACEUTICALS INC-AE-2011-001015

PATIENT
  Age: 52 Year
  Sex: Female
  Weight: 90.91 kg

DRUGS (8)
  1. INCIVEK [Suspect]
     Indication: HEPATITIS C
     Route: 048
     Dates: start: 20110818
  2. RIBASPHERE [Concomitant]
     Indication: HEPATITIS C
     Route: 048
     Dates: start: 20110818
  3. PEGASYS [Concomitant]
     Indication: HEPATITIS C
     Route: 058
     Dates: start: 20110817
  4. PRILOSEC [Concomitant]
     Route: 048
  5. BYSTOLIC [Concomitant]
     Route: 048
  6. LORAZEPAM [Concomitant]
     Route: 048
  7. CYMBALTA [Concomitant]
     Route: 048
  8. HYDROCODONE [Concomitant]

REACTIONS (1)
  - Inappropriate schedule of drug administration [Recovered/Resolved]
